FAERS Safety Report 5929577-1 (Version None)
Quarter: 2008Q4

REPORT INFORMATION
  Report Type: 
  Country: None (occurrence: None)
  Receive Date: 20081024
  Receipt Date: 20081015
  Transmission Date: 20090506
  Serious: Yes (Other)
  Sender: FDA-Public Use
  Company Number: JP-MERCK-0810USA03570

PATIENT
  Age: 20 Year
  Sex: Male

DRUGS (7)
  1. DECADRON [Suspect]
     Indication: BURKITT'S LYMPHOMA
     Route: 048
     Dates: start: 20070101, end: 20070901
  2. ENDOXAN [Suspect]
     Indication: BURKITT'S LYMPHOMA
     Route: 065
     Dates: start: 20070101, end: 20070901
  3. ONCOVIN [Suspect]
     Indication: BURKITT'S LYMPHOMA
     Route: 042
     Dates: start: 20070101, end: 20070901
  4. DOXORUBICIN HCL [Suspect]
     Indication: BURKITT'S LYMPHOMA
     Route: 042
     Dates: start: 20070101, end: 20070901
  5. METHOTREXATE [Suspect]
     Indication: BURKITT'S LYMPHOMA
     Route: 065
     Dates: start: 20070101, end: 20070901
  6. CYTARABINE [Suspect]
     Indication: BURKITT'S LYMPHOMA
     Route: 042
     Dates: start: 20070101, end: 20070901
  7. RITUXAN [Suspect]
     Indication: BURKITT'S LYMPHOMA
     Route: 042
     Dates: start: 20070101, end: 20070901

REACTIONS (5)
  - HERPES ZOSTER [None]
  - NEUTROPHIL COUNT DECREASED [None]
  - PLATELET COUNT DECREASED [None]
  - RENAL FAILURE ACUTE [None]
  - TUMOUR LYSIS SYNDROME [None]
